FAERS Safety Report 19650297 (Version 1)
Quarter: 2021Q3

REPORT INFORMATION
  Report Type: Spontaneous
  Country: FI (occurrence: FI)
  Receive Date: 20210803
  Receipt Date: 20210803
  Transmission Date: 20211014
  Serious: Yes (Other)
  Sender: FDA-Public Use
  Company Number: FI-ROCHE-2877280

PATIENT
  Age: 27 Year
  Sex: Female

DRUGS (6)
  1. GABRION [Concomitant]
     Active Substance: GABAPENTIN
  2. TYSABRI [Concomitant]
     Active Substance: NATALIZUMAB
  3. OCREVUS [Suspect]
     Active Substance: OCRELIZUMAB
     Indication: MULTIPLE SCLEROSIS
     Route: 065
     Dates: start: 2019
  4. PANADOL [Concomitant]
     Active Substance: ACETAMINOPHEN
  5. PANACOD [Concomitant]
     Active Substance: ACETAMINOPHEN\CODEINE PHOSPHATE
  6. BEMETSON [Concomitant]

REACTIONS (2)
  - Therapeutic response decreased [Unknown]
  - Eczema infected [Not Recovered/Not Resolved]
